FAERS Safety Report 8096026-X (Version None)
Quarter: 2012Q1

REPORT INFORMATION
  Report Type: 
  Country: None (occurrence: None)
  Receive Date: 20120129
  Receipt Date: 20111215
  Transmission Date: 20120608
  Serious: No
  Sender: FDA-Public Use
  Company Number: US-ABBOTT-11P-163-0883699-00

PATIENT
  Age: 42 Year
  Sex: Female

DRUGS (15)
  1. PENTASA [Concomitant]
     Indication: PRODUCT USED FOR UNKNOWN INDICATION
     Dosage: 250 MG PO 3 TABLETS QID
     Route: 048
  2. FLUCONAZOLE [Concomitant]
     Indication: PRODUCT USED FOR UNKNOWN INDICATION
     Dosage: 150MG:1-2 ONCE EVERY 7-10 DAYS AS NEEDED
     Route: 048
  3. KLONOPIN [Concomitant]
     Indication: PRODUCT USED FOR UNKNOWN INDICATION
     Dosage: 1 MG UP TO 2/DAY PRN
  4. METRONIDAZOLE [Concomitant]
     Indication: PRODUCT USED FOR UNKNOWN INDICATION
     Dosage: 0.75 VAG 1/DAY
     Route: 067
  5. HYDROCODONE BITARTRATE [Concomitant]
     Indication: PAIN
     Dosage: 10 MG PRN PAIN
  6. IMODIUM [Concomitant]
     Indication: PRODUCT USED FOR UNKNOWN INDICATION
     Dosage: 2 MG: 6-8 PER DAY PRN
  7. NAPROXEN (ALEVE) [Concomitant]
     Indication: INFLAMMATION
  8. FISH OIL [Concomitant]
     Indication: PRODUCT USED FOR UNKNOWN INDICATION
     Dosage: DAILY
     Route: 048
  9. DICYCLOMINE [Concomitant]
     Indication: PRODUCT USED FOR UNKNOWN INDICATION
     Dosage: 1-2 PO TID PRN
     Route: 048
  10. HUMIRA [Suspect]
     Indication: CROHN'S DISEASE
     Dates: start: 20111024
  11. ALBUTEROL [Concomitant]
     Indication: PRODUCT USED FOR UNKNOWN INDICATION
     Dosage: 2-3 TIMES PER DAY PRN
  12. CALCIUM [Concomitant]
     Indication: PRODUCT USED FOR UNKNOWN INDICATION
     Route: 048
  13. NEXIUM [Concomitant]
     Indication: PRODUCT USED FOR UNKNOWN INDICATION
     Dosage: DAILY
     Route: 048
  14. FOSAMAX [Concomitant]
     Indication: PRODUCT USED FOR UNKNOWN INDICATION
     Dosage: 70 MG PO WEEKLY
     Route: 048
  15. VITAMIN D [Concomitant]
     Indication: PRODUCT USED FOR UNKNOWN INDICATION
     Dosage: 1 MG PO WEEKLY
     Route: 048

REACTIONS (4)
  - ORAL INFECTION [None]
  - MUSCULOSKELETAL STIFFNESS [None]
  - SWELLING FACE [None]
  - FACIAL PAIN [None]
